FAERS Safety Report 7244118-7 (Version None)
Quarter: 2011Q1

REPORT INFORMATION
  Report Type: 
  Country: None (occurrence: None)
  Receive Date: 20110125
  Receipt Date: 20110118
  Transmission Date: 20110831
  Serious: Yes (Other)
  Sender: FDA-Public Use
  Company Number: US-CEPHALON-2011000289

PATIENT
  Sex: Male
  Weight: 100 kg

DRUGS (2)
  1. NUVIGIL [Suspect]
     Indication: ATTENTION DEFICIT/HYPERACTIVITY DISORDER
  2. NUVIGIL [Suspect]
     Indication: NARCOLEPSY
     Route: 048

REACTIONS (2)
  - SCHIZOPHRENIA, PARANOID TYPE [None]
  - ANXIETY [None]
